FAERS Safety Report 17298364 (Version 2)
Quarter: 2020Q1

REPORT INFORMATION
  Report Type: Report from Study
  Country: GB (occurrence: GB)
  Receive Date: 20200121
  Receipt Date: 20200130
  Transmission Date: 20200409
  Serious: Yes (Death, Hospitalization)
  Sender: FDA-Public Use
  Company Number: GB-PFIZER INC-2020024061

PATIENT
  Age: 27 Year
  Sex: Female

DRUGS (11)
  1. PROPOFOL. [Suspect]
     Active Substance: PROPOFOL
     Indication: LIGHT ANAESTHESIA
     Dosage: UP TO 20 MG/HR
     Route: 042
  2. MIDAZOLAM HYDROCHLORIDE. [Suspect]
     Active Substance: MIDAZOLAM HYDROCHLORIDE
     Indication: LIGHT ANAESTHESIA
     Dosage: UP TO 24 MG/HR
     Route: 042
  3. PHENOBARBITONE [PHENOBARBITAL] [Concomitant]
     Active Substance: PHENOBARBITAL
     Indication: PRODUCT USED FOR UNKNOWN INDICATION
     Dosage: UNKNOWN
     Route: 065
  4. LEVETIRACETAM. [Concomitant]
     Active Substance: LEVETIRACETAM
     Dosage: UNKNOWN
     Route: 065
  5. KETAMINE HCL [Suspect]
     Active Substance: KETAMINE HYDROCHLORIDE
     Indication: LIGHT ANAESTHESIA
     Dosage: UP TO 1.5 MG/KG WITH INTERMITTENT BOLI UP TO 50 MG
     Route: 042
  6. VALPROATE NA [Concomitant]
     Active Substance: VALPROATE SODIUM
     Dosage: UNKNOWN
     Route: 065
  7. METHYLPREDNISOLONE. [Concomitant]
     Active Substance: METHYLPREDNISOLONE
     Dosage: UNKNOWN
     Route: 042
  8. PREDNISOLONE. [Concomitant]
     Active Substance: PREDNISOLONE
     Dosage: UNKNOWN
     Route: 065
  9. THIOPENTAL SODIUM. [Suspect]
     Active Substance: THIOPENTAL SODIUM
     Indication: LIGHT ANAESTHESIA
     Dosage: UP TO 8 MG/KG/HR
     Route: 042
  10. PHENYTOIN. [Concomitant]
     Active Substance: PHENYTOIN
     Dosage: UNKNOWN
     Route: 065
  11. LACOSAMIDE. [Concomitant]
     Active Substance: LACOSAMIDE
     Dosage: 1 DOSE
     Route: 065

REACTIONS (13)
  - Intensive care unit acquired weakness [Unknown]
  - Multiple organ dysfunction syndrome [Fatal]
  - Sepsis [Unknown]
  - Hypocalcaemia [Unknown]
  - Drug dependence [Unknown]
  - Hypomagnesaemia [Unknown]
  - Blood creatine phosphokinase increased [Unknown]
  - Acute kidney injury [Unknown]
  - Status epilepticus [Fatal]
  - Acute hepatic failure [Unknown]
  - Metabolic acidosis [Unknown]
  - Hypokalaemia [Unknown]
  - Malabsorption [Unknown]
